FAERS Safety Report 5698767-8 (Version None)
Quarter: 2008Q2

REPORT INFORMATION
  Report Type: 
  Country: None (occurrence: None)
  Receive Date: 20080404
  Receipt Date: 20080328
  Transmission Date: 20081010
  Serious: Yes (Death)
  Sender: FDA-Public Use
  Company Number: 028-21880-08031881

PATIENT
  Age: 78 Year
  Sex: Female
  Weight: 87 kg

DRUGS (12)
  1. REVLIMID [Suspect]
     Indication: MYELODYSPLASTIC SYNDROME
     Dosage: DAILY FOR 21 DAYS, ORAL
     Route: 048
     Dates: start: 20080226, end: 20080317
  2. MELPHALAN (MELPHALAN) [Suspect]
     Indication: MYELODYSPLASTIC SYNDROME
     Dosage: 2 MG, DAILY FOR 21 DAYS,  ORAL
     Route: 048
     Dates: start: 20080226, end: 20080317
  3. ASPIRIN [Concomitant]
  4. OMEGA 3 (FISH OIL) (TABLETS) [Concomitant]
  5. MULTIVITAMINS (MULTIVITAMINS)(TABLETS) [Concomitant]
  6. LECITHIN (LECITHIN) (TABLETS) [Concomitant]
  7. FOSAMAX (ALENDRONATE SODIUM) (TABLETS) [Concomitant]
  8. ADVAIR DISKUS 100/50 [Concomitant]
  9. SPIRIVA [Concomitant]
  10. EFFEXOR [Concomitant]
  11. CALCIUM (CALCIUM) [Concomitant]
  12. VITAMIN D [Concomitant]

REACTIONS (7)
  - ATELECTASIS [None]
  - BLOOD PRESSURE DECREASED [None]
  - DIARRHOEA [None]
  - PNEUMONIA [None]
  - PULMONARY EMBOLISM [None]
  - RESPIRATORY ALKALOSIS [None]
  - SEPSIS [None]
